FAERS Safety Report 8130094-1 (Version None)
Quarter: 2012Q1

REPORT INFORMATION
  Report Type: 
  Country: None (occurrence: None)
  Receive Date: 20120210
  Receipt Date: 20120208
  Transmission Date: 20120608
  Serious: Yes (Life-Threatening, Hospitalization, Other)
  Sender: FDA-Public Use
  Company Number: SE-PFIZER INC-2012033828

PATIENT
  Age: 40 Year
  Sex: Male

DRUGS (8)
  1. ALVEDON [Suspect]
     Dosage: UNK
     Route: 048
     Dates: start: 20111221, end: 20111221
  2. ACETAMINOPHEN [Suspect]
     Dosage: UNK
     Route: 048
     Dates: start: 20111221, end: 20111221
  3. THERALEN [Concomitant]
     Dosage: UNK
  4. LYRICA [Suspect]
     Dosage: UNK
     Route: 048
     Dates: start: 20111221, end: 20111221
  5. DICLOFENAC [Concomitant]
     Dosage: UNK
  6. METHADON HCL TAB [Suspect]
     Dosage: UNK
     Route: 048
     Dates: start: 20111221, end: 20111221
  7. PARAFLEX [Concomitant]
     Dosage: UNK
  8. NORGESIC [Concomitant]
     Dosage: UNK

REACTIONS (6)
  - TRANSAMINASES INCREASED [None]
  - DYSPNOEA [None]
  - RESTLESSNESS [None]
  - LOSS OF CONSCIOUSNESS [None]
  - LIVER FUNCTION TEST ABNORMAL [None]
  - ANXIETY [None]
